FAERS Safety Report 10007769 (Version 3)
Quarter: 2015Q3

REPORT INFORMATION
  Report Type: Spontaneous
  Country: US (occurrence: US)
  Receive Date: 20140313
  Receipt Date: 20150814
  Transmission Date: 20151125
  Serious: No
  Sender: FDA-Public Use
  Company Number: US-GILEAD-2013-0069608

PATIENT
  Age: 85 Year
  Sex: Female

DRUGS (1)
  1. LETAIRIS [Suspect]
     Active Substance: AMBRISENTAN
     Indication: PULMONARY ARTERIAL HYPERTENSION
     Dosage: 5 MG, UNK
     Dates: start: 20130130

REACTIONS (2)
  - Unevaluable event [Unknown]
  - Feeling cold [Unknown]

NARRATIVE: CASE EVENT DATE: 20130207
